FAERS Safety Report 6946246-X (Version None)
Quarter: 2010Q3

REPORT INFORMATION
  Report Type: 
  Country: None (occurrence: None)
  Receive Date: 20100824
  Receipt Date: 20100812
  Transmission Date: 20110219
  Serious: No
  Sender: FDA-Public Use
  Company Number: PI-04952

PATIENT
  Sex: Male

DRUGS (2)
  1. CHLORAPREP WITH TINT [Suspect]
     Indication: INFECTION PROPHYLAXIS
     Dosage: 26 ML, ONCE, TOPICAL
     Route: 061
     Dates: start: 20100812
  2. CHLORAPREP WITH TINT [Suspect]
     Indication: PREOPERATIVE CARE
     Dosage: 26 ML, ONCE, TOPICAL
     Route: 061
     Dates: start: 20100812

REACTIONS (3)
  - CARDIAC FUNCTION DISTURBANCE POSTOPERATIVE [None]
  - CHEMICAL INJURY [None]
  - GENERAL PHYSICAL CONDITION ABNORMAL [None]
